FAERS Safety Report 6854553-4 (Version None)
Quarter: 2010Q3

REPORT INFORMATION
  Report Type: 
  Country: None (occurrence: None)
  Receive Date: 20100717
  Receipt Date: 20080109
  Transmission Date: 20110219
  Serious: No
  Sender: FDA-Public Use
  Company Number: US-PFIZER INC-2008003006

PATIENT
  Sex: Female
  Weight: 47.6 kg

DRUGS (5)
  1. CHANTIX [Suspect]
     Indication: SMOKING CESSATION THERAPY
     Dates: start: 20080101
  2. TENORMIN [Concomitant]
  3. WELLBUTRIN XL [Concomitant]
  4. VITAMIN E [Concomitant]
  5. MULTI-VITAMINS [Concomitant]

REACTIONS (1)
  - NAUSEA [None]
